FAERS Safety Report 24168815 (Version 3)
Quarter: 2024Q3

REPORT INFORMATION
  Report Type: Report from Study
  Country: US (occurrence: US)
  Receive Date: 20240802
  Receipt Date: 20240828
  Transmission Date: 20241017
  Serious: Yes (Hospitalization)
  Sender: ABBVIE
  Company Number: US-ABBVIE-5861810

PATIENT
  Age: 74 Year
  Sex: Male

DRUGS (4)
  1. VENCLEXTA [Suspect]
     Active Substance: VENETOCLAX
     Indication: Acute myeloid leukaemia
     Dosage: FORM STRENGTH:100 MILLIGRAM
     Route: 048
     Dates: start: 20240726, end: 20240726
  2. VENCLEXTA [Suspect]
     Active Substance: VENETOCLAX
     Indication: Acute myeloid leukaemia
     Dosage: FORM STRENGTH:100 MILLIGRAM
     Route: 048
     Dates: start: 20240728, end: 20240728
  3. VENCLEXTA [Suspect]
     Active Substance: VENETOCLAX
     Indication: Acute myeloid leukaemia
     Dosage: FORM STRENGTH:100 MILLIGRAM
     Route: 048
     Dates: start: 20240727, end: 20240727
  4. VENCLEXTA [Suspect]
     Active Substance: VENETOCLAX
     Indication: Acute myeloid leukaemia
     Dosage: FORM STRENGTH:100 MILLIGRAM
     Route: 048
     Dates: start: 2024

REACTIONS (4)
  - Chest pain [Recovered/Resolved]
  - Asthenia [Recovering/Resolving]
  - Red blood cell count decreased [Recovering/Resolving]
  - Full blood count abnormal [Recovering/Resolving]

NARRATIVE: CASE EVENT DATE: 20240701
